FAERS Safety Report 17422479 (Version 1)
Quarter: 2020Q1

REPORT INFORMATION
  Report Type: Spontaneous
  Country: US (occurrence: US)
  Receive Date: 20200215
  Receipt Date: 20200215
  Transmission Date: 20200409
  Serious: No
  Sender: FDA-Public Use
  Company Number: NVSC2020US039955

PATIENT
  Sex: Female

DRUGS (1)
  1. HYCAMTIN [Suspect]
     Active Substance: TOPOTECAN HYDROCHLORIDE
     Indication: DYSPNOEA
     Dosage: 0.25 MG, QD (TAKE 1 CAPSULE FOR 5 DAYS FOLLOWED BY 16 DAYS OFF EVERY 21 DAYS)
     Route: 065

REACTIONS (3)
  - Epistaxis [Unknown]
  - Chills [Unknown]
  - Fatigue [Unknown]
